FAERS Safety Report 5735114-7 (Version None)
Quarter: 2008Q2

REPORT INFORMATION
  Report Type: 
  Country: None (occurrence: None)
  Receive Date: 20080512
  Receipt Date: 20080430
  Transmission Date: 20081010
  Serious: Yes (Death)
  Sender: FDA-Public Use
  Company Number: DE-ASTRAZENECA-2008PK00843

PATIENT
  Age: 69 Year
  Sex: Male
  Weight: 63 kg

DRUGS (8)
  1. NEXIUM [Suspect]
     Indication: PROPHYLAXIS
     Route: 048
     Dates: start: 20071122
  2. TEMODAL [Suspect]
     Indication: CHEMOTHERAPY
     Dates: start: 20080327, end: 20080331
  3. NOVANINSULFON [Suspect]
     Indication: PAIN
  4. HYDROCHLOROTHIAZIDE [Suspect]
     Indication: CARDIAC FAILURE
  5. UNAT [Suspect]
     Indication: CARDIAC FAILURE
     Dates: start: 20080411
  6. BISOPROLOL FUMARATE [Suspect]
     Indication: ATRIAL FIBRILLATION
  7. LISINOPRIL [Suspect]
     Indication: HYPERTENSION
  8. FORTECORTIN [Suspect]

REACTIONS (1)
  - DYSPNOEA [None]
